FAERS Safety Report 20163382 (Version 6)
Quarter: 2022Q2

REPORT INFORMATION
  Report Type: Spontaneous
  Country: ZA (occurrence: ZA)
  Receive Date: 20211209
  Receipt Date: 20220512
  Transmission Date: 20220721
  Serious: Yes (Other)
  Sender: FDA-Public Use
  Company Number: ZA-CELLTRION INC.-2021ZA016469

PATIENT

DRUGS (12)
  1. INFLIXIMAB [Suspect]
     Active Substance: INFLIXIMAB
     Indication: Colitis ulcerative
     Dosage: 300 MG AT 6 WEEKLY INTERVALS
     Route: 042
     Dates: start: 20210913
  2. INFLIXIMAB [Suspect]
     Active Substance: INFLIXIMAB
     Dosage: 300 MG AT 6 WEEKLY INTERVALS
     Route: 042
     Dates: start: 20211026
  3. INFLIXIMAB [Suspect]
     Active Substance: INFLIXIMAB
     Dosage: 300 MILLIGRAM, 8 WEEKLY
     Route: 042
     Dates: start: 202108
  4. INFLIXIMAB [Suspect]
     Active Substance: INFLIXIMAB
     Dosage: 600 MILLIGRAM, 8 WEEKLY
     Route: 042
     Dates: start: 20211201
  5. INFLIXIMAB [Suspect]
     Active Substance: INFLIXIMAB
     Dosage: 1.12 UG/ML
     Dates: start: 20220316
  6. INFLIXIMAB [Suspect]
     Active Substance: INFLIXIMAB
     Dosage: 10 MG/KG
  7. INFLIXIMAB [Concomitant]
     Active Substance: INFLIXIMAB
     Dosage: 300 MG, 8 WEEKLY
     Route: 042
     Dates: start: 201904
  8. ASACOL [Concomitant]
     Active Substance: MESALAMINE
     Indication: Colitis ulcerative
     Dosage: 1.6 G, DAILY
  9. NORDETTE [Concomitant]
     Active Substance: ETHINYL ESTRADIOL\LEVONORGESTREL
  10. METHOTREXATE [Concomitant]
     Active Substance: METHOTREXATE
     Indication: Arthritis enteropathic
     Dosage: 25 MG, 1/WEEK
     Route: 048
     Dates: start: 202102
  11. METHOTREXATE [Concomitant]
     Active Substance: METHOTREXATE
     Dosage: 25MG WEEKLY
     Dates: start: 202110
  12. FOLATE SODIUM [Concomitant]
     Active Substance: FOLATE SODIUM
     Dosage: 5 MG, DAILY

REACTIONS (6)
  - Arthritis enteropathic [Not Recovered/Not Resolved]
  - Condition aggravated [Not Recovered/Not Resolved]
  - Illness [Not Recovered/Not Resolved]
  - Drug level decreased [Recovering/Resolving]
  - Overdose [Unknown]
  - Off label use [Unknown]

NARRATIVE: CASE EVENT DATE: 20211026
